FAERS Safety Report 6063644-X (Version None)
Quarter: 2009Q1

REPORT INFORMATION
  Report Type: 
  Country: None (occurrence: None)
  Receive Date: 20090129
  Receipt Date: 20090120
  Transmission Date: 20090719
  Serious: Yes (Hospitalization)
  Sender: FDA-Public Use
  Company Number: DSU-2008-01546

PATIENT
  Age: 57 Year
  Sex: Male
  Weight: 131.5431 kg

DRUGS (3)
  1. BENICAR [Suspect]
     Indication: HYPERTENSION
     Dosage: 40 MG (40 MG, QD), PER ORAL
     Route: 048
     Dates: start: 20070101, end: 20081030
  2. FLOMAX [Suspect]
     Indication: BENIGN PROSTATIC HYPERPLASIA
     Dosage: 0.4 MG (0.4 MG, QD),
     Dates: start: 20070301
  3. CRESTOR [Suspect]

REACTIONS (2)
  - INTRACARDIAC THROMBUS [None]
  - PULMONARY EMBOLISM [None]
